FAERS Safety Report 18571078 (Version 1)
Quarter: 2020Q4

REPORT INFORMATION
  Report Type: Spontaneous
  Country: US (occurrence: US)
  Receive Date: 20201202
  Receipt Date: 20201202
  Transmission Date: 20210114
  Serious: No
  Sender: FDA-Public Use
  Company Number: US-NOVEN PHARMACEUTICALS, INC.-US2020000068

PATIENT

DRUGS (4)
  1. MINIVELLE [Suspect]
     Active Substance: ESTRADIOL
     Indication: NIGHT SWEATS
     Dosage: UNK, FOR 2 MONTHS
     Route: 065
  2. MINIVELLE [Suspect]
     Active Substance: ESTRADIOL
     Indication: HOT FLUSH
     Dosage: 0.1 MG, UNKNOWN
     Route: 062
     Dates: start: 201912, end: 202001
  3. ATENOLOL. [Concomitant]
     Active Substance: ATENOLOL
     Indication: HYPERTENSION
     Dosage: 50 MG, UNK
  4. MINIVELLE [Suspect]
     Active Substance: ESTRADIOL
     Indication: MENOPAUSE
     Dosage: 0.1 MG, UNK
     Route: 062
     Dates: start: 202001

REACTIONS (8)
  - Arthralgia [Unknown]
  - Nail disorder [Unknown]
  - Therapeutic product ineffective [Recovering/Resolving]
  - Ill-defined disorder [Unknown]
  - Insomnia [Recovering/Resolving]
  - Alopecia [Unknown]
  - Blood oestrogen decreased [Recovering/Resolving]
  - Arthritis [Unknown]
